FAERS Safety Report 7303724-1 (Version None)
Quarter: 2011Q1

REPORT INFORMATION
  Report Type: 
  Country: None (occurrence: None)
  Receive Date: 20110221
  Receipt Date: 20110210
  Transmission Date: 20110831
  Serious: Yes (Hospitalization, Other)
  Sender: FDA-Public Use
  Company Number: US-ROCHE-735726

PATIENT
  Sex: Male
  Weight: 102.1 kg

DRUGS (2)
  1. ACCUTANE [Suspect]
     Indication: ACNE
     Route: 065
     Dates: start: 19820101, end: 19850501
  2. ACCUTANE [Suspect]
     Route: 065
     Dates: start: 19860101, end: 19861231

REACTIONS (8)
  - GASTROINTESTINAL INJURY [None]
  - BACK INJURY [None]
  - DIVERTICULITIS [None]
  - COLITIS ULCERATIVE [None]
  - ARTHRITIS [None]
  - INTESTINAL OBSTRUCTION [None]
  - INFLAMMATORY BOWEL DISEASE [None]
  - INTESTINAL HAEMORRHAGE [None]
